FAERS Safety Report 18980312 (Version 1)
Quarter: 2021Q1

REPORT INFORMATION
  Report Type: Spontaneous
  Country: CN (occurrence: CN)
  Receive Date: 20210308
  Receipt Date: 20210308
  Transmission Date: 20210420
  Serious: Yes (Other)
  Sender: FDA-Public Use
  Company Number: CN-ABBVIE-21P-035-3802771-00

PATIENT
  Age: 47 Year
  Sex: Male
  Weight: 68 kg

DRUGS (1)
  1. PANCREATIN [Suspect]
     Active Substance: PANCRELIPASE
     Indication: PANCREATITIS
     Dosage: DAILY DOSE 0.9 GRAM
     Route: 048
     Dates: start: 20210224, end: 20210226

REACTIONS (1)
  - Hypersensitivity [Recovering/Resolving]

NARRATIVE: CASE EVENT DATE: 20210226
